FAERS Safety Report 19353197 (Version 3)
Quarter: 2021Q2

REPORT INFORMATION
  Report Type: Report from Study
  Country: CA (occurrence: CA)
  Receive Date: 20210531
  Receipt Date: 20210630
  Transmission Date: 20210717
  Serious: Yes (Hospitalization, Other)
  Sender: FDA-Public Use
  Company Number: PHHY2018CA188599

PATIENT
  Age: 50 Year
  Sex: Female
  Weight: 70.9 kg

DRUGS (12)
  1. COSENTYX [Suspect]
     Active Substance: SECUKINUMAB
     Dosage: 300 MG, QMO
     Route: 058
     Dates: start: 20180503, end: 20180603
  2. COSENTYX [Suspect]
     Active Substance: SECUKINUMAB
     Dosage: 300 MG, QMO
     Route: 058
     Dates: start: 20181006, end: 20181103
  3. COSENTYX [Suspect]
     Active Substance: SECUKINUMAB
     Dosage: 150 MG, QMO
     Route: 058
     Dates: start: 20190503, end: 20190510
  4. SEBCUR [Concomitant]
     Indication: PRODUCT USED FOR UNKNOWN INDICATION
     Dosage: UNK
     Route: 065
     Dates: start: 20130529
  5. COSENTYX [Suspect]
     Active Substance: SECUKINUMAB
     Dosage: 300 MG, Q3W
     Route: 058
     Dates: start: 20200212
  6. COSENTYX [Suspect]
     Active Substance: SECUKINUMAB
     Dosage: 300 MG, Q3W
     Route: 058
     Dates: start: 20210528
  7. COSENTYX [Suspect]
     Active Substance: SECUKINUMAB
     Indication: PSORIASIS
     Dosage: 300 MG, QMO
     Route: 058
     Dates: start: 20180306, end: 20180403
  8. COSENTYX [Suspect]
     Active Substance: SECUKINUMAB
     Dosage: 300 MG, Q3W
     Route: 058
     Dates: start: 20190625
  9. KENALOG [Concomitant]
     Active Substance: TRIAMCINOLONE ACETONIDE
     Indication: PRODUCT USED FOR UNKNOWN INDICATION
     Dosage: UNK
     Route: 065
     Dates: start: 20180228
  10. COSENTYX [Suspect]
     Active Substance: SECUKINUMAB
     Dosage: 300 MG, QMO
     Route: 058
     Dates: start: 20181203, end: 20190403
  11. KETOCONAZOLE. [Concomitant]
     Active Substance: KETOCONAZOLE
     Indication: PRODUCT USED FOR UNKNOWN INDICATION
     Dosage: UNK
     Route: 065
     Dates: start: 20130529
  12. HIDROCORTISON [Concomitant]
     Active Substance: HYDROCORTISONE
     Indication: PRODUCT USED FOR UNKNOWN INDICATION
     Dosage: UNK
     Route: 065
     Dates: start: 20130529

REACTIONS (26)
  - Oropharyngeal pain [Recovered/Resolved]
  - Seborrhoeic dermatitis [Not Recovered/Not Resolved]
  - Osteoarthritis [Not Recovered/Not Resolved]
  - Femoroacetabular impingement [Recovering/Resolving]
  - Arthralgia [Not Recovered/Not Resolved]
  - Tonsillitis [Recovered/Resolved]
  - Pharyngitis [Recovered/Resolved]
  - Chills [Recovered/Resolved]
  - Psoriatic arthropathy [Recovered/Resolved]
  - Oropharyngeal pain [Recovered/Resolved]
  - Rash [Recovered/Resolved]
  - Product prescribing error [Unknown]
  - Psoriatic arthropathy [Recovered/Resolved]
  - Pharyngitis [Recovered/Resolved]
  - Nausea [Recovered/Resolved]
  - Pharyngeal swelling [Recovered/Resolved]
  - Pharyngitis [Recovered/Resolved]
  - Streptococcal infection [Recovered/Resolved]
  - Oropharyngeal pain [Recovered/Resolved]
  - Oropharyngeal pain [Recovered/Resolved]
  - Bone pain [Recovered/Resolved]
  - Dizziness [Recovered/Resolved]
  - Dyspnoea [Recovered/Resolved]
  - Glaucoma [Recovered/Resolved]
  - Oropharyngeal pain [Recovered/Resolved]
  - Vertigo positional [Not Recovered/Not Resolved]

NARRATIVE: CASE EVENT DATE: 20180503
